FAERS Safety Report 14228930 (Version 1)
Quarter: 2017Q4

REPORT INFORMATION
  Report Type: Spontaneous
  Country: US (occurrence: None)
  Receive Date: 20171124
  Receipt Date: 20171124
  Transmission Date: 20180321
  Serious: No
  Sender: FDA-Public Use
  Company Number: None

PATIENT
  Sex: Female

DRUGS (1)
  1. STELARA [Suspect]
     Active Substance: USTEKINUMAB
     Indication: PSORIASIS
     Dosage: 45MG Q12 WEEKS SUBQ
     Route: 058
     Dates: start: 20170927, end: 20171019

REACTIONS (6)
  - Pruritus [None]
  - Skin burning sensation [None]
  - Hypersensitivity [None]
  - Blister [None]
  - Drug ineffective [None]
  - Therapy cessation [None]
